FAERS Safety Report 24721660 (Version 2)
Quarter: 2025Q1

REPORT INFORMATION
  Report Type: Report from Study
  Country: JP (occurrence: JP)
  Receive Date: 20241211
  Receipt Date: 20250120
  Transmission Date: 20250409
  Serious: Yes (Hospitalization)
  Sender: INSMED
  Company Number: JP-INSMED, INC.-2024-04871-JP

PATIENT
  Age: 72 Year
  Sex: Female

DRUGS (1)
  1. ARIKAYCE [Suspect]
     Active Substance: AMIKACIN
     Indication: Mycobacterium avium complex infection
     Route: 055
     Dates: start: 20231111

REACTIONS (4)
  - Hospitalisation [Unknown]
  - Stress [Unknown]
  - Emotional distress [Unknown]
  - Malaise [Unknown]

NARRATIVE: CASE EVENT DATE: 20241101
